FAERS Safety Report 8915941 (Version 1)
Quarter: 2012Q4

REPORT INFORMATION
  Report Type: 
  Country: US (occurrence: US)
  Receive Date: 20121119
  Receipt Date: 20121119
  Transmission Date: 20130627
  Serious: Yes (Hospitalization)
  Sender: FDA-Public Use
  Company Number: US-JNJFOC-20121106470

PATIENT
  Age: 6 None
  Sex: Female

DRUGS (1)
  1. NUCYNTA ER [Suspect]
     Indication: ANALGESIC THERAPY
     Route: 048

REACTIONS (2)
  - Cardiac arrest [Recovered/Resolved]
  - Opiates negative [Not Recovered/Not Resolved]
